FAERS Safety Report 6094700-8 (Version None)
Quarter: 2009Q1

REPORT INFORMATION
  Report Type: 
  Country: None (occurrence: None)
  Receive Date: 20090224
  Receipt Date: 20090220
  Transmission Date: 20090719
  Serious: Yes (Other)
  Sender: FDA-Public Use
  Company Number: SP02268

PATIENT
  Age: 31 Year
  Sex: Male

DRUGS (1)
  1. COLAZAL [Suspect]
     Indication: IRRITABLE BOWEL SYNDROME
     Dosage: 3000 MG (750 MG, 4 IN 1 D) ,ORAL
     Route: 048
     Dates: start: 20080825, end: 20081001

REACTIONS (1)
  - PERICARDITIS [None]
